FAERS Safety Report 17816374 (Version 1)
Quarter: 2020Q2

REPORT INFORMATION
  Report Type: Spontaneous
  Country: CA (occurrence: CA)
  Receive Date: 20200522
  Receipt Date: 20200522
  Transmission Date: 20200714
  Serious: Yes (Other)
  Sender: FDA-Public Use
  Company Number: CA-FRESENIUS KABI-FK202005113

PATIENT
  Age: 18 Year
  Sex: Male

DRUGS (1)
  1. ETOPOSIDE (MANUFACTURER UNKNOWN) [Suspect]
     Active Substance: ETOPOSIDE
     Indication: NEUROBLASTOMA
     Route: 042

REACTIONS (4)
  - Product use in unapproved indication [Unknown]
  - Urticaria [Unknown]
  - Loss of consciousness [Unknown]
  - Hypersensitivity [Unknown]
